FAERS Safety Report 10576096 (Version 1)
Quarter: 2014Q4

REPORT INFORMATION
  Report Type: Spontaneous
  Country: US (occurrence: None)
  Receive Date: 20141110
  Receipt Date: 20141110
  Transmission Date: 20150529
  Serious: Yes (Other)
  Sender: FDA-Public Use
  Company Number: None

PATIENT
  Age: 62 Year
  Sex: Male
  Weight: 79.38 kg

DRUGS (1)
  1. GADOLINIUM [Suspect]
     Active Substance: GADOLINIUM
     Indication: NUCLEAR MAGNETIC RESONANCE IMAGING
     Dosage: NOT SURE ONCE DAILY INTO A VEIN
     Dates: start: 20141021

REACTIONS (7)
  - Arthralgia [None]
  - Gait disturbance [None]
  - Muscle tightness [None]
  - Spinal disorder [None]
  - Contrast media reaction [None]
  - Muscular weakness [None]
  - Joint stiffness [None]

NARRATIVE: CASE EVENT DATE: 20141026
